FAERS Safety Report 21616294 (Version 2)
Quarter: 2024Q4

REPORT INFORMATION
  Report Type: Report from Study
  Country: US (occurrence: US)
  Receive Date: 20221118
  Receipt Date: 20241024
  Transmission Date: 20250115
  Serious: Yes (Other)
  Sender: ABBVIE
  Company Number: US-ABBVIE-4205604

PATIENT
  Age: 57 Year
  Sex: Male

DRUGS (1)
  1. SKYRIZI [Suspect]
     Active Substance: RISANKIZUMAB-RZAA
     Indication: Psoriasis
     Route: 058
     Dates: start: 2019

REACTIONS (3)
  - Joint arthroplasty [Recovering/Resolving]
  - Limb injury [Unknown]
  - Spinal fracture [Unknown]

NARRATIVE: CASE EVENT DATE: 20221001
